FAERS Safety Report 5507176-3 (Version None)
Quarter: 2007Q4

REPORT INFORMATION
  Report Type: 
  Country: None (occurrence: None)
  Receive Date: 20071022
  Receipt Date: 20070626
  Transmission Date: 20080405
  Serious: Yes (Hospitalization)
  Sender: FDA-Public Use
  Company Number: WSDF_00644

PATIENT
  Age: 78 Year
  Sex: Female
  Weight: 81.7382 kg

DRUGS (8)
  1. WINRHO SDF [Suspect]
     Indication: IDIOPATHIC THROMBOCYTOPENIC PURPURA
     Dosage: 74.92 UG/KG ONCE
     Dates: start: 20070420, end: 20070420
  2. REGULAR INSULIN [Concomitant]
  3. PROCRIT [Concomitant]
  4. NEURONTIN [Concomitant]
  5. FERROUS SULFATE TAB [Concomitant]
  6. PRAVACHOL [Concomitant]
  7. LACTINEX [Concomitant]
  8. PREDNISONE TAB [Concomitant]

REACTIONS (46)
  - ANAEMIA [None]
  - ANAEMIA HAEMOLYTIC AUTOIMMUNE [None]
  - ASCITES [None]
  - ASTHENIA [None]
  - BACTERIAL INFECTION [None]
  - BACTERIAL SEPSIS [None]
  - BLOOD BILIRUBIN INCREASED [None]
  - BLOOD CULTURE POSITIVE [None]
  - BLOOD LACTATE DEHYDROGENASE INCREASED [None]
  - BLOOD PRESSURE SYSTOLIC INCREASED [None]
  - BLOOD UREA INCREASED [None]
  - CARDIAC FAILURE CONGESTIVE [None]
  - CARDIAC MURMUR [None]
  - CARDIAC VALVE DISEASE [None]
  - CARDIAC VALVE VEGETATION [None]
  - CATHETER SEPSIS [None]
  - CHILLS [None]
  - CONDITION AGGRAVATED [None]
  - CONFUSIONAL STATE [None]
  - COOMBS TEST POSITIVE [None]
  - CORONARY ARTERY DISEASE [None]
  - EJECTION FRACTION DECREASED [None]
  - ENDOCARDITIS [None]
  - ENTEROCOCCAL INFECTION [None]
  - ESCHERICHIA INFECTION [None]
  - ESCHERICHIA SEPSIS [None]
  - HAEMOGLOBINURIA [None]
  - HAEMOLYSIS [None]
  - HAEMOLYTIC ANAEMIA [None]
  - HEPATIC CIRRHOSIS [None]
  - HYPOTENSION [None]
  - IDIOPATHIC THROMBOCYTOPENIC PURPURA [None]
  - IMMUNE SYSTEM DISORDER [None]
  - INFUSION RELATED REACTION [None]
  - ISCHAEMIC CARDIOMYOPATHY [None]
  - LEFT VENTRICULAR HYPERTROPHY [None]
  - MITRAL VALVE DISEASE [None]
  - OEDEMA PERIPHERAL [None]
  - PLATELET COUNT DECREASED [None]
  - POLYCHROMASIA [None]
  - PULMONARY HYPERTENSION [None]
  - PULMONARY VALVE INCOMPETENCE [None]
  - PYREXIA [None]
  - SUBACUTE ENDOCARDITIS [None]
  - THROMBOCYTOPENIA [None]
  - WHITE BLOOD CELL COUNT INCREASED [None]
